FAERS Safety Report 5825645-3 (Version None)
Quarter: 2008Q3

REPORT INFORMATION
  Report Type: 
  Country: None (occurrence: None)
  Receive Date: 20080729
  Receipt Date: 20071217
  Transmission Date: 20090109
  Serious: No
  Sender: FDA-Public Use
  Company Number: US-BAYER-200714242BCC

PATIENT
  Age: 87 Year
  Sex: Male
  Weight: 73 kg

DRUGS (5)
  1. ALEVE (CAPLET) [Suspect]
     Indication: PAIN
     Dosage: TOTAL DAILY DOSE: 880 MG  UNIT DOSE: 220 MG
     Route: 048
     Dates: start: 20060101
  2. SYNTHROID [Concomitant]
  3. CARDIZEM LA [Concomitant]
  4. ZETIA [Concomitant]
  5. CENTRUM [Concomitant]

REACTIONS (1)
  - BLOOD SODIUM INCREASED [None]
